FAERS Safety Report 21278885 (Version 1)
Quarter: 2022Q3

REPORT INFORMATION
  Report Type: Spontaneous
  Country: US (occurrence: None)
  Receive Date: 20220901
  Receipt Date: 20220901
  Transmission Date: 20221026
  Serious: Yes (Other)
  Sender: FDA-Public Use
  Company Number: US-ROCHE-3169132

PATIENT
  Sex: Female

DRUGS (1)
  1. ERIVEDGE [Suspect]
     Active Substance: VISMODEGIB
     Indication: Basal cell carcinoma
     Route: 065

REACTIONS (6)
  - Basal cell carcinoma [Unknown]
  - Alopecia [Unknown]
  - Decreased appetite [Unknown]
  - Ageusia [Unknown]
  - Weight decreased [Unknown]
  - Nausea [Unknown]
